FAERS Safety Report 8924935 (Version 1)
Quarter: 2012Q4

REPORT INFORMATION
  Report Type: 
  Country: BR (occurrence: BR)
  Receive Date: 20121126
  Receipt Date: 20121126
  Transmission Date: 20130627
  Serious: Yes (Hospitalization, Other)
  Sender: FDA-Public Use
  Company Number: BR-ELI_LILLY_AND_COMPANY-BR201211006661

PATIENT
  Sex: Female

DRUGS (10)
  1. EFFIENT [Suspect]
     Dosage: UNK
     Route: 048
     Dates: start: 2011, end: 201206
  2. PETROLATUM [Concomitant]
     Indication: INJURY
     Dosage: Unknown
     Route: 061
     Dates: start: 201208
  3. SODIUM [Concomitant]
     Indication: INJURY
     Dosage: Unknown
     Route: 061
     Dates: start: 201208, end: 20121112
  4. ISOSORBIDE [Concomitant]
     Dosage: Unknown
     Route: 065
  5. ACETYLSALICYLIC ACID [Concomitant]
     Dosage: Unknown
     Route: 065
  6. TRIMETAZIDINE [Concomitant]
     Dosage: Unknown
     Route: 065
  7. METOPROLOL [Concomitant]
     Dosage: Unknown
     Route: 065
  8. HYDROCHLOROTHIAZIDE [Concomitant]
     Dosage: Unknown
     Route: 065
  9. ROSUVASTATIN [Concomitant]
     Dosage: Unknown
     Route: 065
  10. LEVOTHYROXINE SODIUM [Concomitant]
     Dosage: Unknown
     Route: 065

REACTIONS (4)
  - Infarction [Recovered/Resolved]
  - Injury [Not Recovered/Not Resolved]
  - Infection [Recovered/Resolved]
  - Dizziness [Unknown]
